FAERS Safety Report 20960276 (Version 7)
Quarter: 2022Q3

REPORT INFORMATION
  Report Type: Spontaneous
  Country: US (occurrence: US)
  Receive Date: 20220615
  Receipt Date: 20220813
  Transmission Date: 20221027
  Serious: No
  Sender: FDA-Public Use
  Company Number: US-NOVARTISTESTPH-NVSC2022US136670

PATIENT
  Sex: Female

DRUGS (2)
  1. BRIMONIDINE TARTRATE/TIMOLOL MALEATE [Suspect]
     Active Substance: BRIMONIDINE TARTRATE\TIMOLOL MALEATE
     Indication: Product used for unknown indication
     Dosage: 0.2-0.5%/15 ML (OP SOLUTION)
     Route: 047
  2. COMBIGAN [Concomitant]
     Active Substance: BRIMONIDINE TARTRATE\TIMOLOL MALEATE
     Indication: Glaucoma
     Dosage: 1 DRP, BID, EACH EYE
     Route: 065

REACTIONS (4)
  - Corneal abrasion [Unknown]
  - Dry eye [Unknown]
  - Corneal erosion [Unknown]
  - Allergic reaction to excipient [Unknown]
